FAERS Safety Report 21042046 (Version 1)
Quarter: 2022Q3

REPORT INFORMATION
  Report Type: Spontaneous
  Country: FR (occurrence: FR)
  Receive Date: 20220705
  Receipt Date: 20220705
  Transmission Date: 20221026
  Serious: Yes (Life-Threatening)
  Sender: FDA-Public Use
  Company Number: None

PATIENT
  Age: 16 Year
  Sex: Female
  Weight: 44 kg

DRUGS (2)
  1. ACETAMINOPHEN [Suspect]
     Active Substance: ACETAMINOPHEN
     Indication: Pain
     Dosage: 8 G (1 TOTAL ENTRE 12 ET 16 COMPRIM?S DE PARAC?TAMOL/COD?INE 500MG (COD? PAR D?FAUT ? 16 COMPRIM?S)
     Route: 065
     Dates: start: 20220531, end: 20220531
  2. CODEINE [Suspect]
     Active Substance: CODEINE
     Indication: Pain
     Dosage: 16 DOSAGE FORM (1 TOTAL, ENTRE 12 ET 16 COMPRIM?S DE PARAC?TAMOL COD?INE 500 (CODE PAR DEFAUT A 16 C
     Route: 065
     Dates: start: 20220531, end: 20220531

REACTIONS (4)
  - Apnoea [Recovered/Resolved]
  - Miosis [Recovered/Resolved]
  - Off label use [Recovered/Resolved]
  - Overdose [Recovered/Resolved]

NARRATIVE: CASE EVENT DATE: 20220531
